FAERS Safety Report 12724952 (Version 1)
Quarter: 2016Q3

REPORT INFORMATION
  Report Type: Other
  Country: US (occurrence: US)
  Receive Date: 20160908
  Receipt Date: 20160908
  Transmission Date: 20161109
  Serious: No
  Sender: FDA-Public Use
  Company Number: US-COL_19917_2015

PATIENT
  Sex: Male

DRUGS (2)
  1. COLGATE TOTAL CLEAN MINT [Suspect]
     Active Substance: SODIUM FLUORIDE\TRICLOSAN
     Indication: PRODUCT USED FOR UNKNOWN INDICATION
     Dosage: FILLED THE BRISTLES OF TOOTHBRUSH/BID/
     Route: 048
     Dates: start: 201412, end: 201412
  2. COLGATE TOTAL CLEAN MINT [Suspect]
     Active Substance: SODIUM FLUORIDE\TRICLOSAN
     Dosage: COVERED HEAD OF TOOTHBRUSH/BID/
     Route: 048
     Dates: start: 20150120, end: 20150130

REACTIONS (16)
  - Sensitivity of teeth [Unknown]
  - Stomatitis [Unknown]
  - Ocular discomfort [Recovering/Resolving]
  - Lip pain [Recovering/Resolving]
  - Sinus disorder [Unknown]
  - Eye pain [Unknown]
  - Weight decreased [Unknown]
  - Facial pain [Recovering/Resolving]
  - Tongue discomfort [Not Recovered/Not Resolved]
  - Hypoacusis [Unknown]
  - Oral disorder [Unknown]
  - Hypoaesthesia oral [Not Recovered/Not Resolved]
  - Oral discomfort [Not Recovered/Not Resolved]
  - Gingival pain [Recovering/Resolving]
  - Pharyngeal disorder [Unknown]
  - Lip disorder [Unknown]

NARRATIVE: CASE EVENT DATE: 2015
